FAERS Safety Report 14896800 (Version 2)
Quarter: 2018Q2

REPORT INFORMATION
  Report Type: Spontaneous
  Country: US (occurrence: US)
  Receive Date: 20180515
  Receipt Date: 20180629
  Transmission Date: 20180711
  Serious: No
  Sender: FDA-Public Use
  Company Number: US-PFIZER INC-2018196872

PATIENT
  Age: 58 Year
  Sex: Female

DRUGS (1)
  1. XELJANZ XR [Suspect]
     Active Substance: TOFACITINIB CITRATE
     Dosage: 11 MG, UNK (XELJANZ XR TAB 11MG (X30),1 MONTH)

REACTIONS (3)
  - Anxiety [Unknown]
  - Headache [Recovering/Resolving]
  - Feeling jittery [Unknown]

NARRATIVE: CASE EVENT DATE: 20180501
